FAERS Safety Report 12528093 (Version 8)
Quarter: 2021Q2

REPORT INFORMATION
  Report Type: Spontaneous
  Country: US (occurrence: US)
  Receive Date: 20160705
  Receipt Date: 20210603
  Transmission Date: 20210716
  Serious: Yes (Hospitalization)
  Sender: FDA-Public Use
  Company Number: US-PFIZER INC-2016328803

PATIENT
  Age: 66 Year
  Sex: Female

DRUGS (1)
  1. XELJANZ [Suspect]
     Active Substance: TOFACITINIB CITRATE
     Indication: RHEUMATOID ARTHRITIS
     Dosage: 5 MG, UNK
     Route: 048

REACTIONS (8)
  - Herpes zoster [Recovered/Resolved]
  - Chills [Unknown]
  - Insomnia [Unknown]
  - Nasopharyngitis [Unknown]
  - Tremor [Unknown]
  - Urinary tract infection [Unknown]
  - Immune system disorder [Unknown]
  - Neuralgia [Not Recovered/Not Resolved]
